FAERS Safety Report 9805359 (Version 1)
Quarter: 2014Q1

REPORT INFORMATION
  Report Type: Spontaneous
  Country: FR (occurrence: FR)
  Receive Date: 20140109
  Receipt Date: 20140109
  Transmission Date: 20141002
  Serious: Yes (Other)
  Sender: FDA-Public Use
  Company Number: FR-JNJFOC-20140102004

PATIENT
  Age: 49 Year
  Sex: Female

DRUGS (5)
  1. SIMPONI [Suspect]
     Indication: ANKYLOSING SPONDYLITIS
     Route: 058
     Dates: start: 20131021, end: 20131021
  2. SIMPONI [Suspect]
     Indication: ANKYLOSING SPONDYLITIS
     Route: 058
     Dates: start: 2013
  3. PROZAC [Concomitant]
     Route: 065
  4. XANAX [Concomitant]
     Route: 065
  5. STILNOX [Concomitant]
     Route: 065

REACTIONS (1)
  - Rash papular [Recovered/Resolved]
